FAERS Safety Report 6899176-6 (Version None)
Quarter: 2010Q3

REPORT INFORMATION
  Report Type: 
  Country: None (occurrence: None)
  Receive Date: 20100802
  Receipt Date: 20080201
  Transmission Date: 20110219
  Serious: No
  Sender: FDA-Public Use
  Company Number: US-PFIZER INC-2007081913

PATIENT
  Age: 79 Year
  Sex: Male

DRUGS (6)
  1. LYRICA [Suspect]
     Indication: NEUROPATHY PERIPHERAL
     Route: 048
     Dates: start: 20070918
  2. METOPROLOL [Concomitant]
  3. LEXAPRO [Concomitant]
  4. PROTONIX [Concomitant]
  5. NIFEDIPINE [Concomitant]
  6. LORAZEPAM [Concomitant]

REACTIONS (1)
  - OEDEMA PERIPHERAL [None]
